FAERS Safety Report 11037626 (Version 3)
Quarter: 2015Q4

REPORT INFORMATION
  Report Type: Spontaneous
  Country: US (occurrence: US)
  Receive Date: 20150416
  Receipt Date: 20151013
  Transmission Date: 20160304
  Serious: Yes (Hospitalization)
  Sender: FDA-Public Use
  Company Number: US-BAYER-2015-117601

PATIENT
  Age: 31 Year
  Sex: Female
  Weight: 64.85 kg

DRUGS (3)
  1. ZOSYN [Concomitant]
     Active Substance: PIPERACILLIN SODIUM\TAZOBACTAM SODIUM
  2. FLECAINIDE [Concomitant]
     Active Substance: FLECAINIDE
     Indication: SUPRAVENTRICULAR TACHYCARDIA
     Route: 048
  3. MIRENA [Suspect]
     Active Substance: LEVONORGESTREL
     Indication: CONTRACEPTION
     Dosage: 20 MCG/24HR, CONT
     Route: 015
     Dates: start: 20080424, end: 20130413

REACTIONS (7)
  - Ectopic pregnancy with contraceptive device [None]
  - Pain [None]
  - Drug ineffective [None]
  - Device dislocation [None]
  - Haemorrhage in pregnancy [None]
  - Injury [None]
  - Abdominal pain [None]

NARRATIVE: CASE EVENT DATE: 20130413
